FAERS Safety Report 8153175-5 (Version None)
Quarter: 2012Q1

REPORT INFORMATION
  Report Type: 
  Country: None (occurrence: None)
  Receive Date: 20120221
  Receipt Date: 20120214
  Transmission Date: 20120608
  Serious: Yes (Death)
  Sender: FDA-Public Use
  Company Number: US-CELGENEUS-163-21880-12021592

PATIENT
  Sex: Male

DRUGS (12)
  1. DECADRON [Concomitant]
     Dosage: .5 MILLIGRAM
     Route: 065
  2. ALLOPURINOL [Concomitant]
     Dosage: 100 MILLIGRAM
     Route: 065
  3. FINASTERIDE [Concomitant]
     Dosage: 5 MILLIGRAM
     Route: 065
  4. PROCRIT [Concomitant]
     Dosage: 1000 MILLILITER
     Route: 065
  5. REVLIMID [Suspect]
     Indication: MULTIPLE MYELOMA
     Dosage: 5 MILLIGRAM
     Route: 048
     Dates: start: 20120211, end: 20120211
  6. CALCITONIN SALMON [Concomitant]
     Dosage: 200/ACT
     Route: 065
  7. ZOFRAN [Concomitant]
     Dosage: 8 MILLIGRAM
     Route: 065
  8. LISINOPRIL [Concomitant]
     Dosage: 10 MILLIGRAM
     Route: 065
  9. PEPCID AC [Concomitant]
     Dosage: 10 MILLIGRAM
     Route: 065
  10. SENNA [Concomitant]
     Dosage: 8.6 MILLIGRAM
     Route: 065
  11. ACETAMINOPHEN [Concomitant]
     Dosage: 325 MILLIGRAM
     Route: 065
  12. VICODIN [Concomitant]
     Dosage: 5-500 MG
     Route: 065

REACTIONS (1)
  - DEATH [None]
